FAERS Safety Report 17612515 (Version 2)
Quarter: 2020Q2

REPORT INFORMATION
  Report Type: Spontaneous
  Country: US (occurrence: US)
  Receive Date: 20200401
  Receipt Date: 20200403
  Transmission Date: 20200713
  Serious: Yes (Other)
  Sender: FDA-Public Use
  Company Number: US-PFIZER INC-2020129666

PATIENT

DRUGS (2)
  1. BUPIVACAINE HCL [Suspect]
     Active Substance: BUPIVACAINE HYDROCHLORIDE
     Indication: LOCAL ANAESTHESIA
     Dosage: 125 MG, UNK
     Route: 042
  2. CHLOROPROCAINE HYDROCHLORIDE. [Suspect]
     Active Substance: CHLOROPROCAINE HYDROCHLORIDE
     Indication: LOCAL ANAESTHESIA
     Dosage: 300 MG, UNK
     Route: 042

REACTIONS (4)
  - Cardiac arrest [Unknown]
  - Toxicity to various agents [Unknown]
  - Product use issue [Unknown]
  - Off label use [Unknown]
